FAERS Safety Report 22245121 (Version 2)
Quarter: 2023Q2

REPORT INFORMATION
  Report Type: Spontaneous
  Country: US (occurrence: US)
  Receive Date: 20230424
  Receipt Date: 20230428
  Transmission Date: 20230721
  Serious: Yes (Other)
  Sender: FDA-Public Use
  Company Number: US-BRISTOL-MYERS SQUIBB COMPANY-2023-055529

PATIENT
  Age: 81 Year
  Sex: Female

DRUGS (1)
  1. SOTYKTU [Suspect]
     Active Substance: DEUCRAVACITINIB
     Indication: Psoriasis
     Dates: start: 20230403, end: 20230418

REACTIONS (6)
  - Oral herpes [Unknown]
  - Aphthous ulcer [Unknown]
  - Fatigue [Unknown]
  - Folliculitis [Unknown]
  - Acne [Unknown]
  - Periorbital cellulitis [Unknown]

NARRATIVE: CASE EVENT DATE: 20230401
